FAERS Safety Report 7331491-4 (Version None)
Quarter: 2011Q1

REPORT INFORMATION
  Report Type: 
  Country: None (occurrence: None)
  Receive Date: 20110304
  Receipt Date: 20110303
  Transmission Date: 20110831
  Serious: Yes (Hospitalization)
  Sender: FDA-Public Use
  Company Number: IT-ABBOTT-11P-083-0706851-00

PATIENT
  Sex: Female

DRUGS (2)
  1. TACHIPIRINA [Concomitant]
     Indication: PRODUCT USED FOR UNKNOWN INDICATION
  2. MACLADIN TM TABLETS [Suspect]
     Indication: OROPHARYNGEAL PAIN
     Route: 048
     Dates: start: 20101209, end: 20101212

REACTIONS (2)
  - PRURITUS GENERALISED [None]
  - URTICARIA [None]
